FAERS Safety Report 5257836-7 (Version None)
Quarter: 2007Q1

REPORT INFORMATION
  Report Type: 
  Country: None (occurrence: None)
  Receive Date: 20070307
  Receipt Date: 20060825
  Transmission Date: 20070707
  Serious: Yes (Other)
  Sender: FDA-Public Use
  Company Number: FR-PFIZER INC-2006108039

PATIENT
  Sex: Male
  Weight: 65 kg

DRUGS (3)
  1. NEURONTIN [Suspect]
     Indication: PAIN
     Dosage: DAILY DOSE:600MG
     Route: 048
     Dates: start: 20060515, end: 20060607
  2. OLMIFON [Concomitant]
     Indication: DISTURBANCE IN ATTENTION
     Route: 048
  3. BETASERON [Concomitant]
     Indication: MULTIPLE SCLEROSIS
     Route: 058

REACTIONS (2)
  - AFFECTIVE DISORDER [None]
  - AGGRESSION [None]
